FAERS Safety Report 7630932-2 (Version None)
Quarter: 2011Q3

REPORT INFORMATION
  Report Type: 
  Country: None (occurrence: None)
  Receive Date: 20110725
  Receipt Date: 20110714
  Transmission Date: 20111222
  Serious: Yes (Hospitalization)
  Sender: FDA-Public Use
  Company Number: US-BIOGENIDEC-2011BI009942

PATIENT
  Age: 47 Year
  Sex: Female

DRUGS (1)
  1. TYSABRI [Suspect]
     Indication: MULTIPLE SCLEROSIS
     Route: 042
     Dates: start: 20090921, end: 20110301

REACTIONS (7)
  - MULTIPLE SCLEROSIS [None]
  - HEADACHE [None]
  - SPINAL DEFORMITY [None]
  - SPINAL DISORDER [None]
  - PAIN IN EXTREMITY [None]
  - HEPATIC ENZYME INCREASED [None]
  - CRYING [None]
